FAERS Safety Report 5332915-4 (Version None)
Quarter: 2007Q2

REPORT INFORMATION
  Report Type: 
  Country: None (occurrence: None)
  Receive Date: 20070521
  Receipt Date: 20070507
  Transmission Date: 20071010
  Serious: Yes (Hospitalization)
  Sender: FDA-Public Use
  Company Number: APP200700010

PATIENT
  Age: 79 Year
  Sex: Male

DRUGS (22)
  1. FLUOROURACIL [Suspect]
     Indication: COLORECTAL CANCER METASTATIC
     Dosage: 50. 2857 MG (704 MG, 1 IN 1 2 WK), INTRAVENOUS
     Route: 042
     Dates: start: 20070116, end: 20070116
  2. CETUXIMAB (CETUXIMAB) [Suspect]
     Indication: COLORECTAL CANCER METASTATIC
     Dosage: 62.8571 MG (440 MG, 1 IN 1 WK), INTRAVENOUS
     Route: 042
     Dates: start: 20070123, end: 20070123
  3. BEVACIZUMAB (BEVACIZUMAB) [Suspect]
     Indication: COLORECTAL CANCER METASTATIC
     Dosage: 23.5714 MG (330 MG, 1 IN 2 WK), INTRAVENOUS
     Route: 042
     Dates: start: 20070116, end: 20070116
  4. LEUCOVORIN CALCIUM [Suspect]
     Indication: COLORECTAL CANCER METASTATIC
     Dosage: 50.2857 MG (704 MG, 1 IN 2 WK), INTRAVENOUS
     Route: 042
  5. SIMVASTATIN [Concomitant]
  6. CALTRATE + D (LEKOVIT CA) [Concomitant]
  7. MAXIPIME [Concomitant]
  8. TOPROL-XL [Concomitant]
  9. PROTONIX [Concomitant]
  10. LEVAQUIN [Concomitant]
  11. NOVOLOG [Concomitant]
  12. PHENERGAN (PHENERGAN WITH CODEINE /00072201/) [Concomitant]
  13. REQUIP [Concomitant]
  14. STARLIX [Concomitant]
  15. TERAZOSIN HCL [Concomitant]
  16. ACTOS [Concomitant]
  17. ASPIRIN [Concomitant]
  18. MULTIVITAMIN (MULTIVITAMIN) [Concomitant]
  19. FOSAMAX [Concomitant]
  20. FUROSEMIDE [Concomitant]
  21. GLIMEPIRIDE [Concomitant]
  22. ENALAPRIL (ENALAPRIL) [Concomitant]

REACTIONS (9)
  - BLOOD CALCIUM DECREASED [None]
  - BLOOD CHLORIDE INCREASED [None]
  - BLOOD POTASSIUM DECREASED [None]
  - DEHYDRATION [None]
  - DIARRHOEA [None]
  - HAEMATOCRIT DECREASED [None]
  - HAEMOGLOBIN DECREASED [None]
  - NAUSEA [None]
  - PYREXIA [None]
